FAERS Safety Report 8357022-8 (Version None)
Quarter: 2012Q2

REPORT INFORMATION
  Report Type: 
  Country: None (occurrence: None)
  Receive Date: 20120514
  Receipt Date: 20120510
  Transmission Date: 20120825
  Serious: Yes (Death)
  Sender: FDA-Public Use
  Company Number: US-ROCHE-1027872

PATIENT
  Sex: Female
  Weight: 83.99 kg

DRUGS (11)
  1. MARINOL (UNITED STATES) [Concomitant]
  2. KAPIDEX [Concomitant]
  3. HERCEPTIN [Suspect]
     Indication: BREAST CANCER METASTATIC
     Route: 042
     Dates: start: 20061010, end: 20070910
  4. PROCRIT [Concomitant]
  5. TAXOL [Concomitant]
     Indication: BREAST CANCER
     Route: 042
  6. CYTOXAN [Concomitant]
     Indication: BREAST CANCER
     Route: 042
  7. DURAGESIC-100 [Concomitant]
  8. AVASTIN [Suspect]
     Indication: BREAST CANCER METASTATIC
     Dates: start: 20091015
  9. ZOMETA [Concomitant]
     Indication: BREAST CANCER METASTATIC
  10. GEMZAR [Concomitant]
     Indication: BREAST CANCER
     Route: 042
  11. ADRIAMYCIN PFS [Concomitant]
     Indication: BREAST CANCER
     Route: 042

REACTIONS (1)
  - DEATH [None]
